FAERS Safety Report 5601093-6 (Version None)
Quarter: 2008Q1

REPORT INFORMATION
  Report Type: 
  Country: None (occurrence: None)
  Receive Date: 20080108
  Receipt Date: 20070914
  Transmission Date: 20080703
  Serious: Yes (Death, Other)
  Sender: FDA-Public Use
  Company Number: PERC20070058

PATIENT
  Age: 32 Year
  Sex: Male

DRUGS (4)
  1. PERCOCET [Suspect]
  2. FENTANYL TRANSDERMAL SYSTEM [Suspect]
     Dates: end: 20070629
  3. ALCOHOL [Suspect]
     Dosage: ORAL
     Route: 048
     Dates: start: 20070629, end: 20070629
  4. XANAX [Suspect]

REACTIONS (2)
  - DRUG ABUSE [None]
  - DRUG TOXICITY [None]
